FAERS Safety Report 8461793-X (Version None)
Quarter: 2012Q2

REPORT INFORMATION
  Report Type: 
  Country: None (occurrence: None)
  Receive Date: 20120625
  Receipt Date: 20120618
  Transmission Date: 20120825
  Serious: Yes (Other)
  Sender: FDA-Public Use
  Company Number: US-BAYER-2012-031040

PATIENT
  Age: 31 Year
  Sex: Female
  Weight: 100 kg

DRUGS (9)
  1. YAZ [Suspect]
     Indication: MENSTRUATION IRREGULAR
     Dosage: UNK
     Dates: start: 20081018, end: 20100630
  2. DROSPIRENONE AND ETHINYL ESTRADIOL [Suspect]
     Indication: CONTRACEPTION
  3. PROPRANOLOL [Concomitant]
     Indication: MIGRAINE
     Dosage: 40 MG, UNK
     Route: 048
     Dates: start: 20090401, end: 20110117
  4. YAZ [Suspect]
     Indication: CONTRACEPTION
  5. DEPAKOTE [Concomitant]
     Indication: MIGRAINE
     Dosage: 500 MG, UNK
     Route: 048
     Dates: start: 20081229, end: 20110117
  6. BISMUTH SUBSALICYLATE [Concomitant]
  7. DROSPIRENONE AND ETHINYL ESTRADIOL [Suspect]
     Indication: MENSTRUATION IRREGULAR
     Dosage: UNK
     Dates: start: 20100630, end: 20110101
  8. LEXAPRO [Concomitant]
     Indication: DEPRESSION
     Dosage: 20 MG, UNK
     Route: 048
     Dates: start: 20050720, end: 20110212
  9. PEPCID [Concomitant]

REACTIONS (4)
  - NAUSEA [None]
  - CHOLELITHIASIS [None]
  - CHOLECYSTITIS CHRONIC [None]
  - ABDOMINAL PAIN [None]
